FAERS Safety Report 16879940 (Version 1)
Quarter: 2019Q4

REPORT INFORMATION
  Report Type: Spontaneous
  Country: CH (occurrence: CH)
  Receive Date: 20191003
  Receipt Date: 20191003
  Transmission Date: 20200122
  Serious: Yes (Death, Hospitalization, Other)
  Sender: FDA-Public Use
  Company Number: CH-ALKEM LABORATORIES LIMITED-CH-ALKEM-2019-08337

PATIENT
  Age: 80 Year
  Sex: Female

DRUGS (2)
  1. CAPECITABINE. [Suspect]
     Active Substance: CAPECITABINE
     Indication: COLORECTAL CANCER METASTATIC
     Dosage: 3 GRAM, QD FOLLOWED BY A 1 WEEK DRUG-FREE INTERVAL
     Route: 065
  2. BRIVUDINE [Suspect]
     Active Substance: BRIVUDINE
     Indication: HERPES ZOSTER
     Dosage: 125 MILLIGRAM, QD
     Route: 065

REACTIONS (9)
  - Septic shock [Unknown]
  - Drug interaction [Fatal]
  - Rash [Unknown]
  - Vomiting [Unknown]
  - Stevens-Johnson syndrome [Unknown]
  - Thrombocytopenia [Unknown]
  - Leukopenia [Unknown]
  - Mucosal inflammation [Unknown]
  - Diarrhoea [Unknown]
